FAERS Safety Report 7555338-6 (Version None)
Quarter: 2011Q2

REPORT INFORMATION
  Report Type: 
  Country: None (occurrence: None)
  Receive Date: 20110617
  Receipt Date: 20110606
  Transmission Date: 20111010
  Serious: Yes (Other)
  Sender: FDA-Public Use
  Company Number: PHHY2011US39242

PATIENT
  Sex: Female

DRUGS (6)
  1. MEDROL [Suspect]
  2. CELEXA [Concomitant]
     Dosage: 20 MG HALF DAILY
  3. GLEEVEC [Suspect]
     Indication: GASTRIC CANCER
     Dosage: 400 MG DAILY
     Route: 048
  4. MELOXICAM [Concomitant]
  5. PANCREATIC ENZYMES [Concomitant]
  6. LUNESTA [Concomitant]
     Dosage: 3 MG, UNK

REACTIONS (12)
  - ARTHRITIS [None]
  - VOMITING [None]
  - DIARRHOEA [None]
  - LOGORRHOEA [None]
  - EYE SWELLING [None]
  - AMNESIA [None]
  - LACRIMATION INCREASED [None]
  - OCULAR HYPERAEMIA [None]
  - FALL [None]
  - DISORIENTATION [None]
  - EYE HAEMORRHAGE [None]
  - NAUSEA [None]
